FAERS Safety Report 5728794-3 (Version None)
Quarter: 2008Q2

REPORT INFORMATION
  Report Type: 
  Country: None (occurrence: None)
  Receive Date: 20080430
  Receipt Date: 20080417
  Transmission Date: 20081010
  Serious: Yes (Other)
  Sender: FDA-Public Use
  Company Number: 2008009943

PATIENT
  Sex: Female

DRUGS (1)
  1. COOL MINT LISTERINE (MENTHOL METHYL SALICYLATE, EUCALYPTOL, THYMOL) [Suspect]
     Dosage: ORAL
     Route: 048
     Dates: start: 20070701

REACTIONS (4)
  - CAUSTIC INJURY [None]
  - FEELING ABNORMAL [None]
  - ORAL DISORDER [None]
  - TONGUE DISORDER [None]
